FAERS Safety Report 7996650 (Version 2)
Quarter: 2020Q3

REPORT INFORMATION
  Report Type: Report from Study
  Country: NL (occurrence: NL)
  Receive Date: 20110617
  Receipt Date: 20111123
  Transmission Date: 20201105
  Serious: Yes (Hospitalization)
  Sender: FDA-Public Use
  Company Number: NL-JNJFOC-20110605434

PATIENT
  Age: 58 Year
  Sex: Male
  Weight: 69 kg

DRUGS (5)
  1. GOLIMUMAB [Suspect]
     Active Substance: GOLIMUMAB
     Route: 058
  2. ADVIL [Concomitant]
     Active Substance: IBUPROFEN
     Route: 048
     Dates: start: 20091027, end: 201012
  3. GOLIMUMAB [Suspect]
     Active Substance: GOLIMUMAB
     Indication: COLITIS ULCERATIVE
     Route: 058
     Dates: start: 20091229, end: 20101029
  4. PARACETAMOL [Concomitant]
     Active Substance: ACETAMINOPHEN
     Route: 048
     Dates: start: 20091129
  5. RAMIPRIL. [Concomitant]
     Active Substance: RAMIPRIL
     Route: 048
     Dates: end: 201102

REACTIONS (14)
  - Actinomyces test positive [None]
  - Haemoglobin decreased [None]
  - Thrombophlebitis [None]
  - Platelet count increased [None]
  - Haematocrit decreased [None]
  - Colitis ulcerative [None]
  - Condition aggravated [None]
  - Diarrhoea [None]
  - Abdominal pain [None]
  - Blood glucose increased [None]
  - Adrenalitis [None]
  - Blood alkaline phosphatase increased [None]
  - Adrenal mass [None]
  - Bacterial sepsis [Recovered/Resolved]

NARRATIVE: CASE EVENT DATE: 20101122
